FAERS Safety Report 22335675 (Version 1)
Quarter: 2023Q2

REPORT INFORMATION
  Report Type: Spontaneous
  Country: US (occurrence: US)
  Receive Date: 20230518
  Receipt Date: 20230518
  Transmission Date: 20230722
  Serious: Yes (Hospitalization, Other)
  Sender: FDA-Public Use
  Company Number: US-APOTEX-2023AP008241

PATIENT
  Age: 67 Year
  Sex: Male

DRUGS (5)
  1. CYCLOSPORINE [Suspect]
     Active Substance: CYCLOSPORINE
     Indication: Heart transplant
     Dosage: UNK
     Route: 065
  2. METHOTREXATE [Suspect]
     Active Substance: METHOTREXATE
     Indication: Post transplant lymphoproliferative disorder
     Dosage: 8200 MILLIGRAM, QD
     Route: 065
  3. RITUXIMAB [Concomitant]
     Active Substance: RITUXIMAB
     Indication: Post transplant lymphoproliferative disorder
     Dosage: UNK
     Route: 065
  4. SODIUM BICARBONATE [Concomitant]
     Active Substance: SODIUM BICARBONATE
     Indication: Post transplant lymphoproliferative disorder
     Dosage: UNK
     Route: 042
  5. LEUCOVORIN [Concomitant]
     Active Substance: LEUCOVORIN
     Indication: Post transplant lymphoproliferative disorder
     Dosage: UNK
     Route: 065

REACTIONS (3)
  - Chronic kidney disease [Unknown]
  - Toxicity to various agents [Unknown]
  - Acute kidney injury [Recovered/Resolved]
